FAERS Safety Report 26166158 (Version 2)
Quarter: 2025Q4

REPORT INFORMATION
  Report Type: Report from Study
  Country: US (occurrence: US)
  Receive Date: 20251216
  Receipt Date: 20251217
  Transmission Date: 20260117
  Serious: Yes (Other)
  Sender: ABBVIE
  Company Number: US-ABBVIE-6592438

PATIENT
  Sex: Male

DRUGS (1)
  1. RINVOQ [Suspect]
     Active Substance: UPADACITINIB
     Indication: Dermatitis atopic
     Dosage: FORM OF STRENGTH 15MG TAKE 1 TABLET BY MOUTH ONCE DAILY
     Route: 048
     Dates: end: 202511

REACTIONS (1)
  - Cardiac disorder [Unknown]
